FAERS Safety Report 5665015-4 (Version None)
Quarter: 2008Q1

REPORT INFORMATION
  Report Type: 
  Country: None (occurrence: None)
  Receive Date: 20080314
  Receipt Date: 20080303
  Transmission Date: 20080703
  Serious: Yes (Death, Hospitalization)
  Sender: FDA-Public Use
  Company Number: FR-PFIZER INC-2008020467

PATIENT
  Sex: Female

DRUGS (1)
  1. SU-011,248 [Suspect]
     Indication: SQUAMOUS CELL CARCINOMA
     Dosage: DAILY DOSE:37.5MG
     Route: 048
     Dates: start: 20080204, end: 20080225

REACTIONS (4)
  - ASTHENIA [None]
  - CACHEXIA [None]
  - COMA [None]
  - SOMNOLENCE [None]
